FAERS Safety Report 15559739 (Version 1)
Quarter: 2018Q4

REPORT INFORMATION
  Report Type: Report from Study
  Country: JP (occurrence: JP)
  Receive Date: 20181029
  Receipt Date: 20181029
  Transmission Date: 20190205
  Serious: Yes (Death, Hospitalization)
  Sender: FDA-Public Use
  Company Number: JP-BAUSCH-BL-2018-010716

PATIENT
  Age: 85 Year
  Sex: Male

DRUGS (26)
  1. TARGRETIN [Suspect]
     Active Substance: BEXAROTENE
     Route: 048
     Dates: start: 20170712, end: 20170725
  2. TARGRETIN [Suspect]
     Active Substance: BEXAROTENE
     Route: 048
     Dates: start: 20171011, end: 20171017
  3. METHYCOBAL [Concomitant]
     Active Substance: METHYLCOBALAMIN
     Indication: PRODUCT USED FOR UNKNOWN INDICATION
  4. RESTAMIN [Concomitant]
     Active Substance: DIPHENHYDRAMINE
     Indication: PRODUCT USED FOR UNKNOWN INDICATION
  5. NEXIUM [Concomitant]
     Active Substance: ESOMEPRAZOLE MAGNESIUM
     Indication: PRODUCT USED FOR UNKNOWN INDICATION
  6. TARGRETIN [Suspect]
     Active Substance: BEXAROTENE
     Route: 048
     Dates: start: 20170830, end: 20170905
  7. TARGRETIN [Suspect]
     Active Substance: BEXAROTENE
     Route: 048
     Dates: start: 20171025, end: 20171031
  8. BAYASPIRIN [Concomitant]
     Active Substance: ASPIRIN
     Indication: PRODUCT USED FOR UNKNOWN INDICATION
  9. TARGRETIN [Suspect]
     Active Substance: BEXAROTENE
     Route: 048
     Dates: start: 20170426, end: 20170704
  10. TARGRETIN [Suspect]
     Active Substance: BEXAROTENE
     Route: 048
     Dates: start: 20171108, end: 20180517
  11. CLOPIDOGREL [Concomitant]
     Active Substance: CLOPIDOGREL BISULFATE
     Indication: PRODUCT USED FOR UNKNOWN INDICATION
  12. TARGRETIN [Suspect]
     Active Substance: BEXAROTENE
     Route: 048
     Dates: start: 20170816, end: 20170822
  13. AMARYL [Concomitant]
     Active Substance: GLIMEPIRIDE
     Indication: PRODUCT USED FOR UNKNOWN INDICATION
  14. VORINOSTAT THERAPY [Concomitant]
     Indication: PRODUCT USED FOR UNKNOWN INDICATION
  15. TARGRETIN [Suspect]
     Active Substance: BEXAROTENE
     Route: 048
     Dates: start: 2017, end: 20170808
  16. ALFAROL [Concomitant]
     Active Substance: ALFACALCIDOL
     Indication: PRODUCT USED FOR UNKNOWN INDICATION
  17. TARGRETIN [Suspect]
     Active Substance: BEXAROTENE
     Route: 048
     Dates: start: 20170913, end: 20170919
  18. TARGRETIN [Suspect]
     Active Substance: BEXAROTENE
     Route: 048
     Dates: start: 20170927, end: 20171003
  19. TARGRETIN [Suspect]
     Active Substance: BEXAROTENE
     Route: 048
     Dates: start: 20180531, end: 201808
  20. UREPEARL [Concomitant]
     Active Substance: UREA
     Indication: PRODUCT USED FOR UNKNOWN INDICATION
  21. BLOPRESS [Concomitant]
     Active Substance: CANDESARTAN CILEXETIL
     Indication: PRODUCT USED FOR UNKNOWN INDICATION
  22. ANTEBATE [Concomitant]
     Active Substance: BETAMETHASONE DIPROPIONATE
     Indication: PRODUCT USED FOR UNKNOWN INDICATION
  23. TARGRETIN [Suspect]
     Active Substance: BEXAROTENE
     Indication: MYCOSIS FUNGOIDES
     Route: 048
     Dates: start: 20170302, end: 20170425
  24. AMLODIPINE [Concomitant]
     Active Substance: AMLODIPINE BESYLATE
     Indication: PRODUCT USED FOR UNKNOWN INDICATION
  25. ALLEGRA [Concomitant]
     Active Substance: FEXOFENADINE HYDROCHLORIDE
     Indication: PRODUCT USED FOR UNKNOWN INDICATION
  26. DIART [Concomitant]
     Active Substance: AZOSEMIDE
     Indication: PRODUCT USED FOR UNKNOWN INDICATION

REACTIONS (7)
  - Cardiac failure [Unknown]
  - Cystitis [Recovered/Resolved]
  - Hypothyroidism [Not Recovered/Not Resolved]
  - Hypo HDL cholesterolaemia [Not Recovered/Not Resolved]
  - Death [Fatal]
  - Hypertriglyceridaemia [Recovered/Resolved]
  - Malaise [Unknown]

NARRATIVE: CASE EVENT DATE: 2017
